FAERS Safety Report 18412331 (Version 1)
Quarter: 2020Q4

REPORT INFORMATION
  Report Type: Spontaneous
  Country: US (occurrence: US)
  Receive Date: 20201021
  Receipt Date: 20201021
  Transmission Date: 20210114
  Serious: Yes (Death)
  Sender: FDA-Public Use
  Company Number: NVSC2020US283199

PATIENT
  Age: 44 Year
  Sex: Female

DRUGS (7)
  1. IPILIMUMAB [Suspect]
     Active Substance: IPILIMUMAB
     Indication: RENAL CELL CARCINOMA
     Dosage: UNK
     Route: 065
  2. EVEROLIMUS. [Suspect]
     Active Substance: EVEROLIMUS
     Indication: RENAL CELL CARCINOMA
     Dosage: UNK
     Route: 065
  3. EVEROLIMUS. [Suspect]
     Active Substance: EVEROLIMUS
     Indication: METASTASES TO LUNG
  4. FLUDIS [Concomitant]
     Indication: DYSPNOEA
     Dosage: UNK
     Route: 041
  5. IPILIMUMAB [Suspect]
     Active Substance: IPILIMUMAB
     Indication: METASTASES TO LUNG
  6. NIVOLUMAB [Suspect]
     Active Substance: NIVOLUMAB
     Indication: RENAL CELL CARCINOMA
     Dosage: UNK
     Route: 065
  7. NIVOLUMAB [Suspect]
     Active Substance: NIVOLUMAB
     Indication: METASTASES TO LUNG

REACTIONS (1)
  - Alveolar proteinosis [Fatal]
